FAERS Safety Report 13206947 (Version 1)
Quarter: 2017Q1

REPORT INFORMATION
  Report Type: Spontaneous
  Country: US (occurrence: US)
  Receive Date: 20170208
  Receipt Date: 20170208
  Transmission Date: 20170428
  Serious: No
  Sender: FDA-Public Use
  Company Number: US-AMGEN-USASP2016140363

PATIENT
  Age: 50 Year
  Sex: Female

DRUGS (2)
  1. NEULASTA [Suspect]
     Active Substance: PEGFILGRASTIM
     Dosage: 2 UNK, Q2WK
     Route: 065
     Dates: start: 2016
  2. NEULASTA [Suspect]
     Active Substance: PEGFILGRASTIM
     Indication: PROPHYLAXIS
     Dosage: 5 UNK, Q2WK
     Route: 065
     Dates: start: 2016

REACTIONS (4)
  - Eye swelling [Unknown]
  - Off label use [Unknown]
  - Rash pruritic [Not Recovered/Not Resolved]
  - White blood cell count increased [Unknown]

NARRATIVE: CASE EVENT DATE: 2016
